FAERS Safety Report 23775876 (Version 1)
Quarter: 2024Q2

REPORT INFORMATION
  Report Type: Spontaneous
  Country: AU (occurrence: AU)
  Receive Date: 20240424
  Receipt Date: 20240424
  Transmission Date: 20240716
  Serious: Yes (Other)
  Sender: FDA-Public Use
  Company Number: AU-HALEON-2168358

PATIENT
  Age: 86 Year
  Sex: Female

DRUGS (4)
  1. PANADOL [Suspect]
     Active Substance: ACETAMINOPHEN
     Indication: Product used for unknown indication
  2. PALEXIA [Suspect]
     Active Substance: TAPENTADOL HYDROCHLORIDE
     Indication: Pain
  3. PALEXIA [Suspect]
     Active Substance: TAPENTADOL HYDROCHLORIDE
     Indication: Pain
  4. PALEXIA [Suspect]
     Active Substance: TAPENTADOL HYDROCHLORIDE
     Dosage: TIME INTERVAL: 0.33333333 DAYS

REACTIONS (4)
  - Respiratory depression [Recovered/Resolved]
  - Wrong technique in product usage process [Unknown]
  - Coma scale abnormal [Recovered/Resolved]
  - Sedation [Recovered/Resolved]
